FAERS Safety Report 17752085 (Version 4)
Quarter: 2021Q4

REPORT INFORMATION
  Report Type: Spontaneous
  Country: US (occurrence: US)
  Receive Date: 20200506
  Receipt Date: 20211123
  Transmission Date: 20220303
  Serious: Yes (Hospitalization, Other)
  Sender: FDA-Public Use
  Company Number: US-GILEAD-2020-0464473

PATIENT
  Age: 48 Year
  Sex: Male
  Weight: 65.76 kg

DRUGS (53)
  1. STRIBILD [Suspect]
     Active Substance: COBICISTAT\ELVITEGRAVIR\EMTRICITABINE\TENOFOVIR DISOPROXIL FUMARATE
     Indication: HIV infection
     Dosage: UNK
     Route: 048
     Dates: start: 20150206, end: 20150618
  2. ACETAMINOPHEN [Concomitant]
     Active Substance: ACETAMINOPHEN
  3. AMOXICILLIN [Concomitant]
     Active Substance: AMOXICILLIN
  4. ASPIRIN [Concomitant]
     Active Substance: ASPIRIN
  5. BACTRIM [Concomitant]
     Active Substance: SULFAMETHOXAZOLE\TRIMETHOPRIM
  6. CRESTOR [Concomitant]
     Active Substance: ROSUVASTATIN CALCIUM
  7. FLEET LAXATIVE [Concomitant]
  8. HEPARIN [Concomitant]
     Active Substance: HEPARIN SODIUM
  9. LEVOFLOXACIN [Concomitant]
     Active Substance: LEVOFLOXACIN
  10. METHYLPREDNISOLONE [Concomitant]
     Active Substance: METHYLPREDNISOLONE
  11. OMEPRAZOLE [Concomitant]
     Active Substance: OMEPRAZOLE
  12. PENICILLIN [Concomitant]
     Active Substance: PENICILLIN
  13. PRAVASTATIN [Concomitant]
     Active Substance: PRAVASTATIN
  14. VANCOMYCIN [Concomitant]
     Active Substance: VANCOMYCIN
  15. EPIVIR [Concomitant]
     Active Substance: LAMIVUDINE
  16. TIVICAY [Concomitant]
     Active Substance: DOLUTEGRAVIR SODIUM
  17. TRIUMEQ [Concomitant]
     Active Substance: ABACAVIR SULFATE\DOLUTEGRAVIR SODIUM\LAMIVUDINE
  18. VASCEPA [Concomitant]
     Active Substance: ICOSAPENT ETHYL
  19. TRAZODONE [Concomitant]
     Active Substance: TRAZODONE HYDROCHLORIDE
  20. RITALIN [Concomitant]
     Active Substance: METHYLPHENIDATE HYDROCHLORIDE
  21. CORGARD [Concomitant]
     Active Substance: NADOLOL
  22. NORVASC [Concomitant]
     Active Substance: AMLODIPINE BESYLATE
  23. ATENOLOL [Concomitant]
     Active Substance: ATENOLOL
  24. CLONIDINE [Concomitant]
     Active Substance: CLONIDINE
  25. BENAZEPRIL [Concomitant]
     Active Substance: BENAZEPRIL HYDROCHLORIDE
  26. HYDROCODONE BITARTRATE AND ACETAMINOPHEN [Concomitant]
     Active Substance: ACETAMINOPHEN\HYDROCODONE BITARTRATE
  27. CITALOPRAM [Concomitant]
     Active Substance: CITALOPRAM HYDROBROMIDE
  28. CELEXA [Concomitant]
     Active Substance: CITALOPRAM HYDROBROMIDE
  29. PAXIL [Concomitant]
     Active Substance: PAROXETINE HYDROCHLORIDE
  30. CLONAZEPAM [Concomitant]
     Active Substance: CLONAZEPAM
  31. ZIAGEN [Concomitant]
     Active Substance: ABACAVIR SULFATE
  32. AMOXICILLIN\CLAVULANIC ACID [Concomitant]
     Active Substance: AMOXICILLIN\CLAVULANIC ACID
  33. TUMS [Concomitant]
     Active Substance: CALCIUM CARBONATE
  34. DEXTROSE [Concomitant]
     Active Substance: DEXTROSE
  35. IOHEXOL [Concomitant]
     Active Substance: IOHEXOL
  36. ANDROGEL [Concomitant]
     Active Substance: TESTOSTERONE
  37. THERA-M [Concomitant]
  38. PROMETHAZINE [Concomitant]
     Active Substance: PROMETHAZINE HYDROCHLORIDE
  39. RISPERIDONE [Concomitant]
     Active Substance: RISPERIDONE
  40. TRAMADOL [Concomitant]
     Active Substance: TRAMADOL
  41. DULOXETINE [Concomitant]
     Active Substance: DULOXETINE
  42. VENLAFAXINE [Concomitant]
     Active Substance: VENLAFAXINE HYDROCHLORIDE
  43. ALBUTEROL\IPRATROPIUM [Concomitant]
     Active Substance: ALBUTEROL\IPRATROPIUM
  44. MELATONIN [Concomitant]
     Active Substance: MELATONIN
  45. DIPHENHYDRAMINE [Concomitant]
     Active Substance: DIPHENHYDRAMINE
  46. DEXTROMETHORPHAN HYDROBROMIDE [Concomitant]
     Active Substance: DEXTROMETHORPHAN HYDROBROMIDE
  47. NITROSTAT [Concomitant]
     Active Substance: NITROGLYCERIN
  48. LOPERAMIDE HYDROCHLORIDE [Concomitant]
     Active Substance: LOPERAMIDE HYDROCHLORIDE
  49. XYLOCAINE [Concomitant]
     Active Substance: LIDOCAINE HYDROCHLORIDE
  50. EPINEPHRINE [Concomitant]
     Active Substance: EPINEPHRINE
  51. FENTANYL [Concomitant]
     Active Substance: FENTANYL
  52. VERSED [Concomitant]
     Active Substance: MIDAZOLAM HYDROCHLORIDE
  53. ZOFRAN [Concomitant]
     Active Substance: ONDANSETRON HYDROCHLORIDE

REACTIONS (17)
  - End stage renal disease [Not Recovered/Not Resolved]
  - Chronic kidney disease [Not Recovered/Not Resolved]
  - Nephrogenic anaemia [Recovered/Resolved]
  - Metabolic acidosis [Recovered/Resolved]
  - Hyponatraemia [Recovered/Resolved]
  - Hyperkalaemia [Recovered/Resolved]
  - Hyperphosphataemia [Recovered/Resolved]
  - Nephropathy toxic [Not Recovered/Not Resolved]
  - Renal tubular necrosis [Not Recovered/Not Resolved]
  - Acute kidney injury [Not Recovered/Not Resolved]
  - Renal failure [Not Recovered/Not Resolved]
  - Bone density decreased [Unknown]
  - Hyperparathyroidism secondary [Not Recovered/Not Resolved]
  - Exercise tolerance decreased [Unknown]
  - Hypertension [Unknown]
  - Emotional distress [Unknown]
  - Pain [Unknown]

NARRATIVE: CASE EVENT DATE: 20150415
